FAERS Safety Report 9885594 (Version 1)
Quarter: 2014Q1

REPORT INFORMATION
  Report Type: Spontaneous
  Country: IN (occurrence: None)
  Receive Date: 20140206
  Receipt Date: 20140206
  Transmission Date: 20141002
  Serious: Yes (Other)
  Sender: FDA-Public Use
  Company Number: AUR-APL-2014-01259

PATIENT
  Age: 22 Year
  Sex: Male

DRUGS (1)
  1. QUETIAPINE (QUETIAPINE) [Suspect]
     Indication: DEPRESSION
     Dosage: 200 MG (100 MG, 2 IN 1 D), UNKNOWN

REACTIONS (10)
  - Pruritus [None]
  - Dermatitis [None]
  - Erythema [None]
  - Drug eruption [None]
  - Dermatitis exfoliative [None]
  - Guttate psoriasis [None]
  - Skin discolouration [None]
  - Hyperhidrosis [None]
  - Dermatitis contact [None]
  - Seborrhoeic dermatitis [None]
